FAERS Safety Report 4845454-1 (Version None)
Quarter: 2005Q4

REPORT INFORMATION
  Report Type: 
  Country: None (occurrence: None)
  Receive Date: 20051125
  Receipt Date: 20051111
  Transmission Date: 20060501
  Serious: Yes (Hospitalization)
  Sender: FDA-Public Use
  Company Number: 2005111558

PATIENT
  Age: 92 Year
  Sex: Female

DRUGS (5)
  1. AMLODIPINE [Suspect]
     Indication: ILL-DEFINED DISORDER
     Dosage: 5 MG ( 5 MG, DAILY), ORAL
     Route: 048
  2. ACETYLSALICYLATE LYSINE (ACETYLSALICYLATE LYSINE) [Concomitant]
     Indication: ILL-DEFINED DISORDER
     Dosage: 75 MG (DAILY), ORAL
     Route: 048
  3. CORVASAL (MOLSIDOMINE) [Suspect]
     Indication: ILL-DEFINED DISORDER
     Dosage: 12 MG (4 MG, TID), ORAL
     Route: 048
  4. SECTRAL [Suspect]
     Indication: ILL-DEFINED DISORDER
     Dosage: 100 MG (200 MG, DAILY), ORAL
     Route: 048
  5. PANTOPRAZOLE SODIUM [Suspect]
     Indication: ILL-DEFINED DISORDER
     Dosage: 20 MG (DAILY), ORAL
     Route: 048
     Dates: start: 20050114, end: 20050628

REACTIONS (3)
  - DISORIENTATION [None]
  - HYPONATRAEMIA [None]
  - TONGUE DRY [None]
